FAERS Safety Report 9127961 (Version 2)
Quarter: 2013Q1

REPORT INFORMATION
  Report Type: Spontaneous
  Country: US (occurrence: US)
  Receive Date: 20130228
  Receipt Date: 20130319
  Transmission Date: 20140127
  Serious: No
  Sender: FDA-Public Use
  Company Number: US-PFIZER INC-2013070874

PATIENT
  Age: 69 Year
  Sex: Male

DRUGS (11)
  1. SUTENT [Suspect]
     Indication: RENAL CANCER
     Dosage: 12.5 MG, UNK
     Dates: start: 20130206
  2. SUTENT [Suspect]
     Dosage: 37.5 MG DAILY, 2 WEEKS ON AND 1 WEEK OFF
     Route: 048
     Dates: start: 201002
  3. SUTENT [Suspect]
     Dosage: UNK
     Dates: start: 201002
  4. ASPIR-LOW [Concomitant]
     Dosage: UNK
  5. AVODART [Concomitant]
     Dosage: UNK
  6. LEVAQUIN [Concomitant]
     Dosage: UNK
  7. LISINOPRIL [Concomitant]
     Indication: HYPERTENSION
     Dosage: 20 MG, 2X/DAY
  8. SIMVASTATIN [Concomitant]
     Dosage: 20 MG, 1X/DAY
  9. ASPIRIN [Concomitant]
     Dosage: 81 MG, UNK
  10. SYNTHROID [Concomitant]
     Dosage: 0.05 MG, UNK
  11. METOPROLOL [Concomitant]
     Dosage: 25 MG, 1X/DAY

REACTIONS (8)
  - Prostatitis [Recovered/Resolved]
  - Burning sensation [Unknown]
  - Irritability [Unknown]
  - Oral pain [Unknown]
  - Sensory disturbance [Unknown]
  - Epistaxis [Unknown]
  - Personality disorder [Unknown]
  - Hypothyroidism [Unknown]
